FAERS Safety Report 6492539-2 (Version None)
Quarter: 2009Q4

REPORT INFORMATION
  Report Type: 
  Country: None (occurrence: None)
  Receive Date: 20091214
  Receipt Date: 20091203
  Transmission Date: 20100525
  Serious: Yes (Other)
  Sender: FDA-Public Use
  Company Number: US-ASTRAZENECA-2009SE30045

PATIENT
  Age: 69 Year
  Sex: Male

DRUGS (5)
  1. CRESTOR [Suspect]
     Indication: BLOOD CHOLESTEROL INCREASED
     Route: 048
     Dates: start: 20070201, end: 20080101
  2. CRESTOR [Suspect]
     Route: 048
     Dates: start: 20080101
  3. ASPIRIN [Concomitant]
  4. EYE VITS [Concomitant]
  5. AZITHROMYCIN [Concomitant]
     Dates: start: 20091130, end: 20091204

REACTIONS (2)
  - CATARACT OPERATION [None]
  - RESPIRATORY TRACT INFECTION [None]
